FAERS Safety Report 7026125-2 (Version None)
Quarter: 2010Q4

REPORT INFORMATION
  Report Type: 
  Country: None (occurrence: None)
  Receive Date: 20101004
  Receipt Date: 20100922
  Transmission Date: 20110411
  Serious: Yes (Hospitalization)
  Sender: FDA-Public Use
  Company Number: US-BIOGENIDEC-2010BI032674

PATIENT
  Age: 24 Year
  Sex: Female
  Weight: 58 kg

DRUGS (2)
  1. AVONEX [Suspect]
     Indication: MULTIPLE SCLEROSIS
     Route: 030
     Dates: start: 20030101, end: 20090801
  2. AVONEX [Suspect]
     Route: 030
     Dates: start: 20100501

REACTIONS (4)
  - CONVULSION [None]
  - MEMORY IMPAIRMENT [None]
  - SPEECH DISORDER [None]
  - STRESS [None]
